FAERS Safety Report 23111844 (Version 2)
Quarter: 2023Q4

REPORT INFORMATION
  Report Type: Spontaneous
  Country: US (occurrence: US)
  Receive Date: 20231026
  Receipt Date: 20231120
  Transmission Date: 20240110
  Serious: Yes (Death, Hospitalization, Other)
  Sender: FDA-Public Use
  Company Number: US-HORIZON THERAPEUTICS-HZN-2023-007937

PATIENT

DRUGS (3)
  1. KRYSTEXXA [Suspect]
     Active Substance: PEGLOTICASE
     Indication: Gouty tophus
     Dosage: 8 MG, FIRST INFUSION
     Route: 042
     Dates: start: 20231010
  2. KRYSTEXXA [Suspect]
     Active Substance: PEGLOTICASE
     Dosage: UNK
  3. METHOTREXATE [Suspect]
     Active Substance: METHOTREXATE
     Indication: Gouty tophus
     Dosage: 20 MG, WEEKLY
     Route: 048
     Dates: start: 202309

REACTIONS (6)
  - Toxic shock syndrome [Fatal]
  - Hepatic failure [Fatal]
  - Renal failure [Fatal]
  - Cardiac failure [Fatal]
  - Necrotising fasciitis [Fatal]
  - Foot amputation [Fatal]

NARRATIVE: CASE EVENT DATE: 20231012
